FAERS Safety Report 7053784-0 (Version None)
Quarter: 2010Q4

REPORT INFORMATION
  Report Type: 
  Country: None (occurrence: None)
  Receive Date: 20101020
  Receipt Date: 20101014
  Transmission Date: 20110411
  Serious: Yes (Other)
  Sender: FDA-Public Use
  Company Number: B0679657A

PATIENT
  Sex: Female

DRUGS (1)
  1. SULTANOL [Suspect]
     Indication: PRODUCT USED FOR UNKNOWN INDICATION
     Route: 055
     Dates: start: 20100601

REACTIONS (2)
  - CHEST DISCOMFORT [None]
  - RESPIRATORY ARREST [None]
